FAERS Safety Report 16643774 (Version 1)
Quarter: 2019Q3

REPORT INFORMATION
  Report Type: Spontaneous
  Country: US (occurrence: US)
  Receive Date: 20190729
  Receipt Date: 20190729
  Transmission Date: 20191004
  Serious: No
  Sender: FDA-Public Use
  Company Number: US-PRINSTON PHARMACEUTICAL INC.-2019PRN00619

PATIENT
  Sex: Female
  Weight: 68.03 kg

DRUGS (2)
  1. UNSPECIFIED MEDICATIONS [Concomitant]
     Active Substance: UNSPECIFIED INGREDIENT
  2. CLONAZEPAM. [Suspect]
     Active Substance: CLONAZEPAM
     Indication: MOOD SWINGS
     Dosage: 1.5 MG, 1X/DAY AT BEDTIME
     Route: 048
     Dates: start: 2018, end: 20190602

REACTIONS (8)
  - Oropharyngeal pain [Recovered/Resolved]
  - Muscle spasms [Recovered/Resolved]
  - Allergic reaction to excipient [Recovered/Resolved]
  - Pain [Recovered/Resolved]
  - Thyroid disorder [Unknown]
  - Headache [Recovered/Resolved]
  - Drug ineffective for unapproved indication [Recovered/Resolved]
  - Anxiety [Recovered/Resolved]

NARRATIVE: CASE EVENT DATE: 2018
